FAERS Safety Report 5378630-2 (Version None)
Quarter: 2007Q3

REPORT INFORMATION
  Report Type: 
  Country: None (occurrence: None)
  Receive Date: 20070702
  Receipt Date: 20070702
  Transmission Date: 20080115
  Serious: Yes (Life-Threatening, Hospitalization)
  Sender: FDA-Public Use
  Company Number: None

PATIENT
  Sex: Male
  Weight: 78.9259 kg

DRUGS (1)
  1. AVASTIN [Suspect]
     Indication: LUNG CARCINOMA CELL TYPE UNSPECIFIED STAGE IV
     Dosage: 1364 MG ONCE IV
     Route: 042
     Dates: start: 20070129, end: 20070129

REACTIONS (3)
  - BRONCHOPLEURAL FISTULA [None]
  - EMPYEMA [None]
  - RESPIRATORY TRACT INFECTION [None]
